FAERS Safety Report 25871816 (Version 1)
Quarter: 2025Q4

REPORT INFORMATION
  Report Type: Spontaneous
  Country: TR (occurrence: TR)
  Receive Date: 20251001
  Receipt Date: 20251001
  Transmission Date: 20260118
  Serious: Yes (Death)
  Sender: PRINSTON PHARMACEUTICAL
  Company Number: TR-PRINSTON PHARMACEUTICAL INC.-2025PRN00318

PATIENT
  Sex: Male

DRUGS (1)
  1. TADALAFIL [Suspect]
     Active Substance: TADALAFIL
     Indication: Erectile dysfunction
     Dosage: UNK

REACTIONS (1)
  - Cardiac failure [Fatal]
